FAERS Safety Report 13639372 (Version 1)
Quarter: 2017Q2

REPORT INFORMATION
  Report Type: Spontaneous
  Country: US (occurrence: US)
  Receive Date: 20170609
  Receipt Date: 20170609
  Transmission Date: 20170830
  Serious: No
  Sender: FDA-Public Use
  Company Number: US-ROCHE-791417

PATIENT
  Sex: Male

DRUGS (1)
  1. KLONOPIN [Suspect]
     Active Substance: CLONAZEPAM
     Indication: PRODUCT USED FOR UNKNOWN INDICATION
     Dosage: DOSE FORM, ROUTE AND FREQUENCY NOT REPORTED
     Route: 065

REACTIONS (4)
  - Depression [Unknown]
  - Adverse reaction [Unknown]
  - Stress [Unknown]
  - Back pain [Unknown]
